FAERS Safety Report 6871399-1 (Version None)
Quarter: 2010Q3

REPORT INFORMATION
  Report Type: 
  Country: None (occurrence: None)
  Receive Date: 20100723
  Receipt Date: 20100720
  Transmission Date: 20110219
  Serious: Yes (Hospitalization)
  Sender: FDA-Public Use
  Company Number: JP-SANOFI-AVENTIS-2010SA019751

PATIENT
  Age: 76 Year
  Sex: Male
  Weight: 42.4 kg

DRUGS (19)
  1. LANTUS [Suspect]
     Indication: DIABETES MELLITUS
     Dosage: IN THE MORNING DOSE:7 UNIT(S)
     Route: 058
     Dates: start: 20091010
  2. SOLOSTAR [Suspect]
     Dates: start: 20091010
  3. NOVOLIN R [Suspect]
     Indication: DIABETES MELLITUS
     Dosage: DOSE AS USED: 6-6-4
     Route: 058
     Dates: start: 20100327, end: 20100329
  4. NOVOLIN R [Suspect]
     Dosage: DOSE AS USED: 8-7-4
     Dates: start: 20091017, end: 20100129
  5. NOVOLIN R [Suspect]
     Dosage: DOSE AS USED: 7-6-4
     Dates: start: 20100130, end: 20100326
  6. NOVOLIN R [Suspect]
     Dosage: DOSE AS USED: UNKNOWN
     Route: 058
     Dates: start: 20100330, end: 20100330
  7. BLINDED THERAPY [Suspect]
     Indication: PERIPHERAL ARTERIAL OCCLUSIVE DISEASE
     Route: 048
     Dates: start: 20090717, end: 20091016
  8. INVESTIGATIONAL DRUG [Suspect]
     Indication: PERIPHERAL ARTERIAL OCCLUSIVE DISEASE
     Route: 048
     Dates: start: 20091017, end: 20100716
  9. PLETAL [Concomitant]
     Indication: THROMBOSIS PROPHYLAXIS
     Route: 048
     Dates: start: 20090319
  10. AMLODIPINE BESYLATE [Concomitant]
     Route: 048
     Dates: start: 20070427
  11. ITOROL [Concomitant]
     Indication: PROPHYLAXIS
     Route: 048
     Dates: start: 20040810
  12. URSO 250 [Concomitant]
     Route: 048
     Dates: start: 20040713
  13. FAMOTIDINE [Concomitant]
     Route: 048
     Dates: start: 20040910
  14. FRANDOL [Concomitant]
     Indication: PROPHYLAXIS
     Route: 062
     Dates: start: 20040713
  15. EPADEL [Concomitant]
     Indication: THROMBOSIS PROPHYLAXIS
     Route: 048
     Dates: start: 20090814
  16. LOPEMIN [Concomitant]
     Indication: PROPHYLAXIS AGAINST DIARRHOEA
     Route: 048
     Dates: start: 20090926
  17. METHYCOBAL [Concomitant]
     Indication: DIABETIC NEUROPATHY
     Route: 048
     Dates: start: 20091113
  18. SODIUM BICARBONATE AND CALCIUM CHLORIDE DIHYDRATE AND SODIUM CHLORIDE [Concomitant]
     Indication: CATARACT
     Route: 047
     Dates: start: 20080326
  19. KARY UNI [Concomitant]
     Indication: CATARACT
     Route: 047
     Dates: start: 20080609

REACTIONS (2)
  - DECREASED APPETITE [None]
  - HYPOGLYCAEMIA [None]
